FAERS Safety Report 4364617-5 (Version None)
Quarter: 2004Q2

REPORT INFORMATION
  Report Type: 
  Country: None (occurrence: None)
  Receive Date: 20040521
  Receipt Date: 20040511
  Transmission Date: 20050107
  Serious: Yes (Death, Hospitalization, Other)
  Sender: FDA-Public Use
  Company Number: 2004-05-0739

PATIENT
  Age: 77 Year
  Sex: Male

DRUGS (2)
  1. FLUTAMIDE [Suspect]
     Indication: PROSTATE CANCER
     Dosage: 750 MG QD ORAL
     Route: 048
  2. GOSERELIN ACETATE INJECTABLES [Suspect]
     Indication: PROSTATE CANCER
     Dosage: 10.8 MG SUBCUTANEOUS
     Route: 058

REACTIONS (16)
  - ALANINE AMINOTRANSFERASE INCREASED [None]
  - AMMONIA INCREASED [None]
  - ASPARTATE AMINOTRANSFERASE INCREASED [None]
  - ASTERIXIS [None]
  - BLOOD ALKALINE PHOSPHATASE INCREASED [None]
  - BLOOD BILIRUBIN INCREASED [None]
  - BLOOD LACTATE DEHYDROGENASE INCREASED [None]
  - BLOOD PHOSPHORUS DECREASED [None]
  - BLOOD URIC ACID INCREASED [None]
  - CONDITION AGGRAVATED [None]
  - HEPATIC ENCEPHALOPATHY [None]
  - HEPATIC NEOPLASM [None]
  - HEPATOMEGALY [None]
  - LETHARGY [None]
  - OEDEMA PERIPHERAL [None]
  - TUMOUR LYSIS SYNDROME [None]
